FAERS Safety Report 21221704 (Version 3)
Quarter: 2022Q4

REPORT INFORMATION
  Report Type: Spontaneous
  Country: US (occurrence: US)
  Receive Date: 20220817
  Receipt Date: 20221020
  Transmission Date: 20230112
  Serious: Yes (Other)
  Sender: FDA-Public Use
  Company Number: US-SANOFI-01232130

PATIENT
  Age: 34 Year
  Sex: Female

DRUGS (1)
  1. DUPIXENT [Suspect]
     Active Substance: DUPILUMAB
     Indication: Asthma
     Dosage: 300 MG, FREQUENCY: OTHER
     Route: 058

REACTIONS (8)
  - Clostridium difficile infection [Unknown]
  - Injection site rash [Unknown]
  - Injection site urticaria [Unknown]
  - Skin exfoliation [Unknown]
  - Injection site pruritus [Unknown]
  - Injection site swelling [Unknown]
  - Condition aggravated [Unknown]
  - Injection site erythema [Unknown]

NARRATIVE: CASE EVENT DATE: 20220601
